FAERS Safety Report 8637595 (Version 2)
Quarter: 2012Q4

REPORT INFORMATION
  Report Type: 
  Country: DK (occurrence: DK)
  Receive Date: 20120627
  Receipt Date: 20120829
  Transmission Date: 20130627
  Serious: Yes (Death)
  Sender: FDA-Public Use
  Company Number: PHHY2012DK054654

PATIENT

DRUGS (1)
  1. VOLTAREN [Suspect]

REACTIONS (2)
  - Cardiac arrest [Fatal]
  - Embolism [Fatal]
